FAERS Safety Report 6281451-X (Version None)
Quarter: 2009Q3

REPORT INFORMATION
  Report Type: 
  Country: None (occurrence: None)
  Receive Date: 20090724
  Receipt Date: 20090716
  Transmission Date: 20100115
  Serious: Yes (Hospitalization)
  Sender: FDA-Public Use
  Company Number: JP-BRISTOL-MYERS SQUIBB COMPANY-14689822

PATIENT
  Age: 69 Year
  Sex: Female
  Weight: 58 kg

DRUGS (5)
  1. ABILIFY [Suspect]
     Indication: SCHIZOAFFECTIVE DISORDER
     Dosage: ABILIFY TABS 6 MG
     Route: 048
     Dates: start: 20090616, end: 20090618
  2. RISPERDAL [Suspect]
     Indication: SCHIZOAFFECTIVE DISORDER
     Dosage: STRENGTH: 1 MG TABLET  REGIMEN 2: 3MG, QD ORAL
     Route: 048
  3. ROHYPNOL [Suspect]
     Indication: INSOMNIA
     Dosage: STRENGTH: 1MG TABLET
     Route: 048
     Dates: end: 20090619
  4. DEPAS [Suspect]
     Indication: INSOMNIA
     Dosage: STRENGTH:  0.5 MG TABLET
     Route: 048
  5. AMOBAN [Suspect]
     Indication: INSOMNIA
     Dosage: STRENGTH: 7.5 MG TABLET   7.5MG/D FROM 02JUN-15JUN09, 14DAYS;  15MG/D FROM 16-19JUN09, 4DAYS
     Route: 048
     Dates: start: 20090602, end: 20090619

REACTIONS (5)
  - ACUTE RESPIRATORY FAILURE [None]
  - BLOOD CREATINE PHOSPHOKINASE INCREASED [None]
  - HEPATIC FUNCTION ABNORMAL [None]
  - MYOGLOBINURIA [None]
  - RENAL FAILURE ACUTE [None]
